FAERS Safety Report 24259199 (Version 1)
Quarter: 2024Q3

REPORT INFORMATION
  Report Type: Report from Study
  Country: AR (occurrence: None)
  Receive Date: 20240828
  Receipt Date: 20240828
  Transmission Date: 20241017
  Serious: Yes (Other)
  Sender: ASTRAZENECA
  Company Number: 2024A187741

PATIENT
  Age: 16593 Day
  Sex: Male

DRUGS (5)
  1. SAPHNELO [Suspect]
     Active Substance: ANIFROLUMAB-FNIA
     Indication: Systemic lupus erythematosus
     Dates: start: 20240726
  2. ASPIRIN [Concomitant]
     Active Substance: ASPIRIN
     Dosage: 100 MILIGRAMS DAILY
     Dates: start: 2023
  3. HYDROXYCHLOROQUINE [Concomitant]
     Active Substance: HYDROXYCHLOROQUINE
     Dosage: 400 MILIGRAMS DAILY
     Route: 048
     Dates: start: 2022
  4. PREDNISONE [Concomitant]
     Active Substance: PREDNISONE
     Dosage: 5 MILIGRAMS DAILY
     Dates: start: 202302
  5. AZATHIOPRINE [Concomitant]
     Active Substance: AZATHIOPRINE
     Dosage: 100 MILIGRAMS DAILY
     Dates: start: 2022

REACTIONS (3)
  - Lip swelling [Recovered/Resolved]
  - Arthralgia [Unknown]
  - Cheilitis [Recovered/Resolved]

NARRATIVE: CASE EVENT DATE: 20240802
